FAERS Safety Report 12638744 (Version 1)
Quarter: 2016Q3

REPORT INFORMATION
  Report Type: Spontaneous
  Country: GB (occurrence: GB)
  Receive Date: 20160809
  Receipt Date: 20160809
  Transmission Date: 20161109
  Serious: Yes (Other)
  Sender: FDA-Public Use
  Company Number: PHHY2016GB105657

PATIENT
  Age: 42 Year
  Sex: Female
  Weight: 83 kg

DRUGS (1)
  1. CLARITHROMYCIN. [Suspect]
     Active Substance: CLARITHROMYCIN
     Indication: INFECTED BITE
     Dosage: 500 MG, UNK
     Route: 048
     Dates: start: 20160720

REACTIONS (4)
  - Diarrhoea [Not Recovered/Not Resolved]
  - Reaction to drug excipients [Unknown]
  - Nausea [Not Recovered/Not Resolved]
  - Gastrointestinal tract irritation [Not Recovered/Not Resolved]

NARRATIVE: CASE EVENT DATE: 20160720
